FAERS Safety Report 11334135 (Version 1)
Quarter: 2015Q3

REPORT INFORMATION
  Report Type: Report from Study
  Country: NL (occurrence: NL)
  Receive Date: 20150803
  Receipt Date: 20150803
  Transmission Date: 20151125
  Serious: Yes (Hospitalization)
  Sender: FDA-Public Use
  Company Number: NL-ABBVIE-14P-114-1310100-00

PATIENT
  Age: 56 Year
  Sex: Male
  Weight: 75 kg

DRUGS (1)
  1. LUCRIN DEPOT [Suspect]
     Active Substance: LEUPROLIDE ACETATE
     Indication: PROSTATE CANCER
     Route: 058
     Dates: start: 20140829

REACTIONS (8)
  - Pollakiuria [Not Recovered/Not Resolved]
  - Transurethral prostatectomy [Recovered/Resolved]
  - Weight increased [Recovered/Resolved with Sequelae]
  - Injection site hypoaesthesia [Recovered/Resolved]
  - Arthropathy [Not Recovered/Not Resolved]
  - Transurethral prostatectomy [Recovered/Resolved]
  - Hot flush [Recovered/Resolved]
  - Insomnia [Not Recovered/Not Resolved]

NARRATIVE: CASE EVENT DATE: 20140829
